FAERS Safety Report 11623866 (Version 1)
Quarter: 2015Q4

REPORT INFORMATION
  Report Type: Spontaneous
  Country: US (occurrence: None)
  Receive Date: 20151009
  Receipt Date: 20151009
  Transmission Date: 20160304
  Serious: No
  Sender: FDA-Public Use
  Company Number: None

PATIENT
  Age: 70 Year
  Sex: Female

DRUGS (1)
  1. STIVARGA [Suspect]
     Active Substance: REGORAFENIB
     Indication: COLON CANCER
     Dosage: 160 MG, DAILY FOR 21 DAYS?
     Route: 048
     Dates: start: 20150628, end: 20150815

REACTIONS (4)
  - Erythema [None]
  - Dizziness [None]
  - Asthenia [None]
  - Swelling [None]

NARRATIVE: CASE EVENT DATE: 20150815
